FAERS Safety Report 22640934 (Version 1)
Quarter: 2023Q2

REPORT INFORMATION
  Report Type: Report from Study
  Country: US (occurrence: US)
  Receive Date: 20230626
  Receipt Date: 20230626
  Transmission Date: 20230721
  Serious: Yes (Other)
  Sender: FDA-Public Use
  Company Number: US-BEH-2023160273

PATIENT
  Age: 36 Year
  Sex: Male
  Weight: 158.4 kg

DRUGS (1)
  1. PRIVIGEN [Suspect]
     Active Substance: HUMAN IMMUNOGLOBULIN G
     Dosage: 2 BOTTLES QMT ,STRENGHT 10 UNKNONW UNITS
     Route: 065

REACTIONS (10)
  - Venous injury [Not Recovered/Not Resolved]
  - Infusion site bruising [Not Recovered/Not Resolved]
  - No adverse event [Unknown]
  - Product preparation error [Unknown]
  - Incorrect drug administration rate [Unknown]
  - Inappropriate schedule of product administration [Unknown]
  - Drug ineffective [Unknown]
  - Contusion [Unknown]
  - Haematoma [Unknown]
  - Platelet count decreased [Unknown]
